FAERS Safety Report 8298489-3 (Version None)
Quarter: 2012Q2

REPORT INFORMATION
  Report Type: 
  Country: None (occurrence: None)
  Receive Date: 20120419
  Receipt Date: 20111229
  Transmission Date: 20120825
  Serious: No
  Sender: FDA-Public Use
  Company Number: US-ABBOTT-11P-163-0877319-00

PATIENT
  Sex: Female

DRUGS (1)
  1. LUPRON DEPOT-PED [Suspect]
     Indication: PRECOCIOUS PUBERTY
     Dosage: EVERY 23 DAYS
     Dates: start: 20111026, end: 20111123

REACTIONS (4)
  - RASH GENERALISED [None]
  - HYPERSENSITIVITY [None]
  - DYSPNOEA [None]
  - ERYTHEMA [None]
